FAERS Safety Report 7544037-2 (Version None)
Quarter: 2011Q2

REPORT INFORMATION
  Report Type: 
  Country: None (occurrence: None)
  Receive Date: 20110613
  Receipt Date: 20050830
  Transmission Date: 20111010
  Serious: Yes (Hospitalization, Other)
  Sender: FDA-Public Use
  Company Number: PHHO2004CO17622

PATIENT
  Sex: Female

DRUGS (4)
  1. ASPIRIN [Concomitant]
     Dosage: 100 MG, UNK
  2. DIOVAN HCT [Suspect]
     Indication: HYPERTENSION
     Dosage: 160/12.5MG/DAILY
     Route: 048
     Dates: start: 20020101
  3. SILICAINE [Suspect]
  4. LOVASTATIN [Concomitant]

REACTIONS (8)
  - ARRHYTHMIA [None]
  - HYPOAESTHESIA [None]
  - HYPERTENSION [None]
  - SYNCOPE [None]
  - THROMBOSIS [None]
  - VOMITING [None]
  - ANGINA PECTORIS [None]
  - TACHYPNOEA [None]
